FAERS Safety Report 12714001 (Version 1)
Quarter: 2016Q3

REPORT INFORMATION
  Report Type: Spontaneous
  Country: US (occurrence: US)
  Receive Date: 20160905
  Receipt Date: 20160905
  Transmission Date: 20161109
  Serious: No
  Sender: FDA-Public Use
  Company Number: US-009507513-1608USA015790

PATIENT
  Age: 21 Year
  Sex: Female
  Weight: 58.96 kg

DRUGS (1)
  1. NEXPLANON [Suspect]
     Active Substance: ETONOGESTREL
     Indication: CONTRACEPTION
     Dosage: EVERY 3 YEARS
     Route: 059
     Dates: start: 20150727

REACTIONS (4)
  - Amenorrhoea [Recovered/Resolved]
  - Migraine [Unknown]
  - Breast tenderness [Unknown]
  - Menorrhagia [Recovering/Resolving]

NARRATIVE: CASE EVENT DATE: 2016
